FAERS Safety Report 6097080-7 (Version None)
Quarter: 2009Q1

REPORT INFORMATION
  Report Type: 
  Country: None (occurrence: None)
  Receive Date: 20090225
  Receipt Date: 20090216
  Transmission Date: 20090719
  Serious: Yes (Life-Threatening, Hospitalization)
  Sender: FDA-Public Use
  Company Number: LTI2009A00015

PATIENT
  Age: 68 Year
  Sex: Female

DRUGS (11)
  1. COMPETACT (PIOGLITAZONE HYDROCHLORIDE, METFORMIN HYDROCHLORIDE) [Suspect]
     Indication: TYPE 2 DIABETES MELLITUS
     Dosage: 2 TAB. (1 TAB., 2 IN 1 D) ORAL
     Route: 048
     Dates: start: 20071123, end: 20090101
  2. COMPETACT (PIOGLITAZONE HYDROCHLORIDE, METFORMIN HYDROCHLORIDE) [Suspect]
     Indication: TYPE 2 DIABETES MELLITUS
     Dosage: 2 TAB. (1 TAB., 2 IN 1 D) ORAL
     Route: 048
     Dates: start: 20090201
  3. AVANDAMET [Suspect]
     Indication: TYPE 2 DIABETES MELLITUS
     Dosage: 2 DF (1 DF, 2 IN 1 D) ORAL
     Route: 048
     Dates: start: 20060512, end: 20071123
  4. DIAMICRON (GLICLAZIDE) [Concomitant]
  5. IRBESARTAN [Concomitant]
  6. LASIX [Concomitant]
  7. EUPRESSYL (URAPIDIL) [Concomitant]
  8. ATORVASTATIN CALCIUM [Concomitant]
  9. LEVOTHYROXINE SODIUM [Concomitant]
  10. DIGOXIN [Concomitant]
  11. POTASSIUM CHLORIDE [Concomitant]

REACTIONS (24)
  - ANAEMIA [None]
  - AORTIC ARTERIOSCLEROSIS [None]
  - ATRIAL FIBRILLATION [None]
  - BLOOD THYROID STIMULATING HORMONE INCREASED [None]
  - CYTOLYTIC HEPATITIS [None]
  - DECUBITUS ULCER [None]
  - DISEASE COMPLICATION [None]
  - GLYCOSYLATED HAEMOGLOBIN INCREASED [None]
  - HAEMATOMA [None]
  - HAEMATURIA [None]
  - HAEMODIALYSIS [None]
  - HAEMORRHAGE [None]
  - HERPES VIRUS INFECTION [None]
  - HYPOTENSION [None]
  - HYPOXIA [None]
  - MITRAL VALVE INCOMPETENCE [None]
  - OVERDOSE [None]
  - PERICARDIAL EFFUSION [None]
  - PULMONARY EMBOLISM [None]
  - PULMONARY HYPERTENSION [None]
  - RENAL FAILURE [None]
  - RIGHT VENTRICULAR FAILURE [None]
  - SHOCK HAEMORRHAGIC [None]
  - WEIGHT INCREASED [None]
